FAERS Safety Report 6483558-0 (Version None)
Quarter: 2009Q4

REPORT INFORMATION
  Report Type: 
  Country: None (occurrence: None)
  Receive Date: 20091208
  Receipt Date: 20091208
  Transmission Date: 20100525
  Serious: No
  Sender: FDA-Public Use
  Company Number: None

PATIENT
  Age: 45 Year
  Sex: Male

DRUGS (1)
  1. TESTOSTERONE [Suspect]
     Indication: HYPOGONADISM
     Dosage: 2.5MG TOP
     Route: 061

REACTIONS (1)
  - DRUG HYPERSENSITIVITY [None]
